FAERS Safety Report 8451401-6 (Version None)
Quarter: 2012Q2

REPORT INFORMATION
  Report Type: 
  Country: None (occurrence: None)
  Receive Date: 20120620
  Receipt Date: 20120228
  Transmission Date: 20120825
  Serious: No
  Sender: FDA-Public Use
  Company Number: US-VERTEX PHARMACEUTICALS INC.-AE-2012-002875

PATIENT
  Sex: Male
  Weight: 72.64 kg

DRUGS (3)
  1. COPEGUS [Concomitant]
     Indication: HEPATITIS C
     Dates: start: 20120204
  2. PEGASYS [Concomitant]
     Indication: HEPATITIS C
     Dates: start: 20120204
  3. INCIVEK [Suspect]
     Indication: HEPATITIS C
     Route: 048
     Dates: start: 20120221

REACTIONS (4)
  - DECREASED APPETITE [None]
  - EPISTAXIS [None]
  - DYSPNOEA [None]
  - DRY MOUTH [None]
